FAERS Safety Report 5879537-4 (Version None)
Quarter: 2008Q3

REPORT INFORMATION
  Report Type: 
  Country: None (occurrence: None)
  Receive Date: 20080911
  Receipt Date: 20080813
  Transmission Date: 20090109
  Serious: No
  Sender: FDA-Public Use
  Company Number: 08H-163-0314854-00

PATIENT
  Sex: 0

DRUGS (1)
  1. HEPARIN SODIUM INJECTION [Suspect]
     Dates: start: 20080813

REACTIONS (2)
  - ANTICOAGULATION DRUG LEVEL BELOW THERAPEUTIC [None]
  - DEVICE FAILURE [None]
